FAERS Safety Report 11637417 (Version 13)
Quarter: 2016Q2

REPORT INFORMATION
  Report Type: Spontaneous
  Country: US (occurrence: US)
  Receive Date: 20151016
  Receipt Date: 20160607
  Transmission Date: 20160815
  Serious: Yes (Hospitalization, Other)
  Sender: FDA-Public Use
  Company Number: US-PFIZER INC-2015302167

PATIENT
  Age: 80 Year
  Sex: Male
  Weight: 66 kg

DRUGS (10)
  1. SUTENT [Suspect]
     Active Substance: SUNITINIB MALATE
     Dosage: 50 MG, CYCLIC (2 WEEKS ON / 1 WEEK OFF)
     Route: 048
     Dates: end: 20151014
  2. AMLODIPINE [Concomitant]
     Active Substance: AMLODIPINE BESYLATE
     Dosage: UNK
  3. FOLIC ACID. [Concomitant]
     Active Substance: FOLIC ACID
     Dosage: UNK
     Dates: start: 1998
  4. LASIX [Concomitant]
     Active Substance: FUROSEMIDE
     Dosage: UNK
     Dates: start: 200006
  5. SUTENT [Suspect]
     Active Substance: SUNITINIB MALATE
     Dosage: 50 MG, DAILY CYCLIC, FOR 4 WEEKS, 2 WEEKS OFF
     Route: 048
     Dates: start: 20150914, end: 20151006
  6. SIMVASTATIN. [Concomitant]
     Active Substance: SIMVASTATIN
     Dosage: 20 MG, 1X/DAY
     Route: 048
  7. ELIQUIS [Concomitant]
     Active Substance: APIXABAN
     Dosage: 5 MG, 2X/DAY
     Dates: start: 201508
  8. LISINOPRIL. [Concomitant]
     Active Substance: LISINOPRIL
     Dosage: UNK
  9. SUTENT [Suspect]
     Active Substance: SUNITINIB MALATE
     Indication: RENAL CANCER STAGE IV
     Dosage: 50 MG, DAILY CYCLIC (2 WEEKS ON / 1 WEEK OFF)
     Route: 048
     Dates: start: 20150912, end: 20151009
  10. PRILOSEC [Concomitant]
     Active Substance: OMEPRAZOLE MAGNESIUM
     Dosage: 20 MG, DAILY
     Dates: start: 201506

REACTIONS (12)
  - Disease progression [Not Recovered/Not Resolved]
  - Renal cancer metastatic [Not Recovered/Not Resolved]
  - Tumour haemorrhage [Recovered/Resolved]
  - Second primary malignancy [Unknown]
  - Haematuria [Recovered/Resolved]
  - Pruritus [Unknown]
  - Nausea [Unknown]
  - Intestinal obstruction [Recovered/Resolved]
  - Anaemia [Recovered/Resolved]
  - Ageusia [Not Recovered/Not Resolved]
  - Fatigue [Recovered/Resolved]
  - Myelodysplastic syndrome [Unknown]

NARRATIVE: CASE EVENT DATE: 2015
